FAERS Safety Report 25583589 (Version 1)
Quarter: 2025Q3

REPORT INFORMATION
  Report Type: Spontaneous
  Country: US (occurrence: US)
  Receive Date: 20250721
  Receipt Date: 20250721
  Transmission Date: 20251021
  Serious: Yes (Other)
  Sender: NOVO NORDISK
  Company Number: US-NOVOPROD-1456909

PATIENT
  Age: 71 Year
  Sex: Female

DRUGS (3)
  1. WEGOVY [Suspect]
     Active Substance: SEMAGLUTIDE
     Indication: Weight control
     Route: 058
     Dates: start: 20250317
  2. WEGOVY [Suspect]
     Active Substance: SEMAGLUTIDE
     Indication: Blood cholesterol increased
  3. WEGOVY [Suspect]
     Active Substance: SEMAGLUTIDE
     Indication: Hypertension

REACTIONS (4)
  - Blood calcium increased [Unknown]
  - Cerebrovascular accident [Unknown]
  - Weight increased [Not Recovered/Not Resolved]
  - Weight loss poor [Not Recovered/Not Resolved]

NARRATIVE: CASE EVENT DATE: 20250317
